FAERS Safety Report 8512039-5 (Version None)
Quarter: 2012Q3

REPORT INFORMATION
  Report Type: 
  Country: None (occurrence: None)
  Receive Date: 20120716
  Receipt Date: 20120702
  Transmission Date: 20120928
  Serious: Yes (Other)
  Sender: FDA-Public Use
  Company Number: GB-MYLANLABS-2012S1013396

PATIENT
  Age: 57 Year
  Sex: Female

DRUGS (2)
  1. AMLODIPINE [Suspect]
     Indication: HYPERTENSION
     Dates: start: 20120608, end: 20120609
  2. AMLODIPINE [Concomitant]
     Dates: start: 20120509, end: 20120608

REACTIONS (6)
  - CRYING [None]
  - PALPITATIONS [None]
  - HEADACHE [None]
  - LACRIMATION INCREASED [None]
  - BLOOD PRESSURE INCREASED [None]
  - MALAISE [None]
